FAERS Safety Report 7376227-6 (Version None)
Quarter: 2011Q1

REPORT INFORMATION
  Report Type: 
  Country: None (occurrence: None)
  Receive Date: 20110325
  Receipt Date: 20110311
  Transmission Date: 20110831
  Serious: Yes (Hospitalization)
  Sender: FDA-Public Use
  Company Number: JP-JNJFOC-20110306715

PATIENT
  Age: 42 Year
  Sex: Male
  Weight: 84 kg

DRUGS (3)
  1. REMICADE [Suspect]
     Dosage: TOTAL 5 INFUSIONS
     Route: 042
  2. REMICADE [Suspect]
     Indication: PSORIATIC ARTHROPATHY
     Dosage: TOTAL 4 DOSES
     Route: 042
  3. REMICADE [Suspect]
     Route: 042

REACTIONS (2)
  - PRODUCTIVE COUGH [None]
  - COMPUTERISED TOMOGRAM ABNORMAL [None]
